FAERS Safety Report 24153723 (Version 1)
Quarter: 2024Q3

REPORT INFORMATION
  Report Type: Spontaneous
  Country: US (occurrence: US)
  Receive Date: 20240730
  Receipt Date: 20240730
  Transmission Date: 20241017
  Serious: Yes (Other)
  Sender: AMGEN
  Company Number: US-AMGEN-USASP2024148295

PATIENT
  Age: 52 Year
  Sex: Female
  Weight: 120 kg

DRUGS (2)
  1. PREDNISONE [Suspect]
     Active Substance: PREDNISONE
     Indication: Sarcoidosis
     Dosage: 0.5 MG/KG/D
     Route: 065
  2. PREDNISONE [Suspect]
     Active Substance: PREDNISONE
     Dosage: 60 MILLIGRAM PER DECILITRE
     Route: 065

REACTIONS (3)
  - Pericardial effusion [Recovered/Resolved]
  - Lymphadenopathy [Unknown]
  - Off label use [Unknown]
